FAERS Safety Report 10764871 (Version 2)
Quarter: 2016Q1

REPORT INFORMATION
  Report Type: Other
  Country: US (occurrence: US)
  Receive Date: 20150205
  Receipt Date: 20160217
  Transmission Date: 20160525
  Serious: No
  Sender: FDA-Public Use
  Company Number: US-ACORDA-ACO_103363_2014

PATIENT
  Sex: Male
  Weight: 62.13 kg

DRUGS (1)
  1. AMPYRA [Suspect]
     Active Substance: DALFAMPRIDINE
     Indication: GAIT DISTURBANCE
     Dosage: 10 MG, Q 12 HRS
     Route: 048
     Dates: start: 20131026

REACTIONS (3)
  - Coating in mouth [Not Recovered/Not Resolved]
  - Dry mouth [Unknown]
  - Skin odour abnormal [Not Recovered/Not Resolved]
